FAERS Safety Report 24346757 (Version 1)
Quarter: 2024Q3

REPORT INFORMATION
  Report Type: Spontaneous
  Country: US (occurrence: US)
  Receive Date: 20240921
  Receipt Date: 20240921
  Transmission Date: 20241017
  Serious: No
  Sender: AMGEN
  Company Number: US-AMGEN-USASP2024186482

PATIENT

DRUGS (2)
  1. TAVNEOS [Suspect]
     Active Substance: AVACOPAN
     Indication: Product used for unknown indication
     Dosage: 30 MILLIGRAM, BID (60MG DAILY)
     Route: 065
     Dates: start: 202311
  2. TAVNEOS [Suspect]
     Active Substance: AVACOPAN
     Dosage: 30 MILLIGRAM, QD
     Route: 065

REACTIONS (1)
  - Off label use [Unknown]
